FAERS Safety Report 9641882 (Version 2)
Quarter: 2013Q4

REPORT INFORMATION
  Report Type: Spontaneous
  Country: US (occurrence: US)
  Receive Date: 20131023
  Receipt Date: 20131023
  Transmission Date: 20140711
  Serious: Yes (Hospitalization)
  Sender: FDA-Public Use
  Company Number: US-SA-FABR-1002578

PATIENT
  Age: 48 Year
  Sex: Female
  Weight: 88.45 kg

DRUGS (10)
  1. FABRAZYME [Suspect]
     Indication: FABRY^S DISEASE
     Dosage: 1.01 MG/KG, Q2W
     Route: 042
     Dates: start: 2004
  2. FABRAZYME [Suspect]
     Indication: FABRY^S DISEASE
     Route: 042
  3. PARACETAMOL [Suspect]
     Indication: PREMEDICATION
     Dosage: 1000 MG, UNK
     Route: 065
  4. SALICYLAMIDE [Concomitant]
     Indication: ANTICOAGULANT THERAPY
     Dosage: 81 MG, QD
     Route: 065
     Dates: start: 20040319
  5. WARFARIN SODIUM [Concomitant]
     Indication: ANTICOAGULANT THERAPY
     Dosage: UNK
     Route: 065
     Dates: start: 20041107
  6. GABAPENTIN [Concomitant]
     Indication: NEURALGIA
     Dosage: 200 MG, BID
     Route: 065
     Dates: start: 20041117
  7. ESCITALOPRAM OXALATE [Concomitant]
     Indication: PRODUCT USED FOR UNKNOWN INDICATION
     Dosage: 10 MG, QD
     Route: 065
     Dates: start: 20060305
  8. BACLOFEN [Concomitant]
     Indication: MUSCULOSKELETAL STIFFNESS
     Dosage: UNK
     Route: 065
     Dates: start: 20060602
  9. CLARINEX /USA/ [Concomitant]
     Indication: MULTIPLE ALLERGIES
     Dosage: UNK
     Route: 065
     Dates: start: 20071201
  10. RAMIPRIL [Concomitant]
     Indication: PROTEINURIA
     Dosage: 2.5 MG, QD
     Route: 065
     Dates: start: 20100930

REACTIONS (2)
  - Hemiparesis [Not Recovered/Not Resolved]
  - Fall [Recovered/Resolved]
